FAERS Safety Report 5469803-9 (Version None)
Quarter: 2007Q3

REPORT INFORMATION
  Report Type: 
  Country: None (occurrence: None)
  Receive Date: 20070927
  Receipt Date: 20070926
  Transmission Date: 20080115
  Serious: Yes (Other)
  Sender: FDA-Public Use
  Company Number: US-BRISTOL-MYERS SQUIBB COMPANY-13919527

PATIENT
  Age: 64 Year
  Sex: Male
  Weight: 83 kg

DRUGS (21)
  1. CISPLATIN [Suspect]
     Indication: SQUAMOUS CELL CARCINOMA
     Dosage: RECEIVED ON DAY 8 AND 29 ONCURRENT WITH RADIATION THERAPY
     Route: 042
     Dates: start: 20070813
  2. CETUXIMAB [Suspect]
     Indication: SQUAMOUS CELL CARCINOMA
     Dates: start: 20070917, end: 20070917
  3. RADIATION THERAPY [Suspect]
     Indication: SQUAMOUS CELL CARCINOMA
     Dosage: TOTAL DOSE: 6000CGY
     Dates: end: 20070921
  4. CELEXA [Concomitant]
  5. DEXAMETHASONE 0.5MG TAB [Concomitant]
  6. DIPHENHYDRAMINE HCL [Concomitant]
  7. FENTANYL [Concomitant]
  8. FLUCONAZOLE [Concomitant]
  9. HYDROCORTISONE [Concomitant]
  10. MAALOX [Concomitant]
  11. LORAZEPAM [Concomitant]
  12. MINOCYCLINE HCL [Concomitant]
  13. MIRALAX [Concomitant]
  14. ONDANSETRON [Concomitant]
  15. PALONOSETRON [Concomitant]
  16. PROCHLORPERAZINE [Concomitant]
  17. RANITIDINE HCL [Concomitant]
  18. ROXICET [Concomitant]
  19. SENOKOT [Concomitant]
  20. SILVER SULFADIAZINE [Concomitant]
  21. ZOLPIDEM TARTRATE [Concomitant]

REACTIONS (2)
  - HAEMOGLOBIN DECREASED [None]
  - LYMPHOPENIA [None]
